FAERS Safety Report 5395545-4 (Version None)
Quarter: 2007Q3

REPORT INFORMATION
  Report Type: 
  Country: None (occurrence: None)
  Receive Date: 20070724
  Receipt Date: 20070530
  Transmission Date: 20080115
  Serious: Yes (Other)
  Sender: FDA-Public Use
  Company Number: US-PURDUE-USA_2007_0028372

PATIENT
  Sex: Male

DRUGS (1)
  1. OXYCONTIN [Suspect]
     Indication: DRUG ABUSER
     Dates: start: 19990721, end: 20020101

REACTIONS (12)
  - ANOREXIA [None]
  - ANXIETY [None]
  - CARDIAC FAILURE CONGESTIVE [None]
  - CHOLECYSTECTOMY [None]
  - DRUG ABUSER [None]
  - DRUG DEPENDENCE [None]
  - HEPATOMEGALY [None]
  - INSOMNIA [None]
  - KIDNEY ENLARGEMENT [None]
  - NERVOUSNESS [None]
  - TOOTH LOSS [None]
  - ULCER [None]
